FAERS Safety Report 8139620-X (Version None)
Quarter: 2012Q1

REPORT INFORMATION
  Report Type: 
  Country: None (occurrence: None)
  Receive Date: 20120215
  Receipt Date: 20120210
  Transmission Date: 20120608
  Serious: Yes (Hospitalization, Disabling)
  Sender: FDA-Public Use
  Company Number: US-PFIZER INC-2011029116

PATIENT
  Sex: Female

DRUGS (1)
  1. CHANTIX [Suspect]
     Indication: SMOKING CESSATION THERAPY
     Dosage: 1 MG,
     Dates: start: 20060703, end: 20080204

REACTIONS (7)
  - DYSARTHRIA [None]
  - CRANIAL NERVE DISORDER [None]
  - APHASIA [None]
  - CARDIOMYOPATHY [None]
  - DYSPHAGIA [None]
  - MUSCULAR WEAKNESS [None]
  - MUSCLE ATROPHY [None]
